FAERS Safety Report 19967069 (Version 1)
Quarter: 2021Q4

REPORT INFORMATION
  Report Type: Spontaneous
  Country: MY (occurrence: MY)
  Receive Date: 20211019
  Receipt Date: 20211019
  Transmission Date: 20220303
  Serious: Yes (Death, Other)
  Sender: FDA-Public Use
  Company Number: MY-SUN PHARMACEUTICAL INDUSTRIES LTD-2021R1-314455

PATIENT
  Age: 18 Year
  Sex: Male

DRUGS (2)
  1. CIPROFLOXACIN [Suspect]
     Active Substance: CIPROFLOXACIN
     Indication: Atypical mycobacterial infection
     Dosage: 400 MILLIGRAM, BID
     Route: 042
  2. AMIKACIN [Suspect]
     Active Substance: AMIKACIN
     Indication: Atypical mycobacterial infection
     Dosage: 800 MILLIGRAM, QD
     Route: 042

REACTIONS (4)
  - Drug resistance [Fatal]
  - Pneumonia [Fatal]
  - Neutropenic sepsis [Fatal]
  - Drug-induced liver injury [Unknown]
